FAERS Safety Report 7058396-0 (Version None)
Quarter: 2010Q4

REPORT INFORMATION
  Report Type: 
  Country: None (occurrence: None)
  Receive Date: 20101022
  Receipt Date: 20101015
  Transmission Date: 20110411
  Serious: No
  Sender: FDA-Public Use
  Company Number: US-PFIZER INC-2010132058

PATIENT
  Sex: Male
  Weight: 29.932 kg

DRUGS (3)
  1. ZOLOFT [Suspect]
     Indication: ANXIETY
     Dosage: 1 ML, 1X/DAY
     Route: 048
     Dates: start: 20101006, end: 20101013
  2. ZOLOFT [Suspect]
     Dosage: 2 ML, 1X/DAY
     Dates: start: 20101013
  3. METHYLPHENIDATE [Concomitant]
     Dosage: 200 MG, 1X/DAY

REACTIONS (1)
  - DYSGEUSIA [None]
